FAERS Safety Report 19449623 (Version 1)
Quarter: 2021Q2

REPORT INFORMATION
  Report Type: Report from Study
  Country: PL (occurrence: PL)
  Receive Date: 20210622
  Receipt Date: 20210622
  Transmission Date: 20210717
  Serious: Yes (Other)
  Sender: FDA-Public Use
  Company Number: NVSC2021PL131742

PATIENT

DRUGS (1)
  1. METFORMIN [Suspect]
     Active Substance: METFORMIN HYDROCHLORIDE
     Indication: PRODUCT USED FOR UNKNOWN INDICATION
     Route: 065

REACTIONS (15)
  - Angina pectoris [Unknown]
  - Coronary artery disease [Unknown]
  - Hypoaesthesia [Unknown]
  - Lethargy [Unknown]
  - Cerebrovascular accident [Unknown]
  - Memory impairment [Unknown]
  - Myocardial infarction [Unknown]
  - Blindness [Unknown]
  - Peripheral arterial occlusive disease [Unknown]
  - Sensory loss [Unknown]
  - Drug intolerance [Unknown]
  - Paraesthesia [Unknown]
  - Blood glucose decreased [Unknown]
  - Mental impairment [Unknown]
  - Diabetic retinopathy [Unknown]
